FAERS Safety Report 18383684 (Version 2)
Quarter: 2020Q4

REPORT INFORMATION
  Report Type: Spontaneous
  Country: US (occurrence: US)
  Receive Date: 20201014
  Receipt Date: 20201105
  Transmission Date: 20210114
  Serious: Yes (Death, Hospitalization, Other)
  Sender: FDA-Public Use
  Company Number: US-PFIZER INC-2020396580

PATIENT
  Age: 69 Year
  Sex: Female
  Weight: 67.57 kg

DRUGS (3)
  1. XELJANZ [Suspect]
     Active Substance: TOFACITINIB CITRATE
     Indication: COLITIS ULCERATIVE
     Dosage: 10 MG, 2X/DAY
     Route: 048
     Dates: start: 20200921, end: 20200927
  2. LIALDA [Concomitant]
     Active Substance: MESALAMINE
     Indication: COLITIS ULCERATIVE
     Dosage: 4.8 G
     Dates: start: 2019, end: 20200928
  3. PREDNISONE. [Concomitant]
     Active Substance: PREDNISONE
     Indication: COLITIS ULCERATIVE
     Dosage: 40 MG
     Dates: start: 20200417, end: 20200928

REACTIONS (3)
  - Large intestine perforation [Fatal]
  - Colitis ulcerative [Unknown]
  - Sepsis [Fatal]

NARRATIVE: CASE EVENT DATE: 2020
